FAERS Safety Report 6269319-6 (Version None)
Quarter: 2009Q3

REPORT INFORMATION
  Report Type: 
  Country: None (occurrence: None)
  Receive Date: 20090715
  Receipt Date: 20090708
  Transmission Date: 20100115
  Serious: Yes (Other)
  Sender: FDA-Public Use
  Company Number: JP-SANOFI-SYNTHELABO-A01200907284

PATIENT
  Age: 65 Year
  Sex: Male

DRUGS (4)
  1. CALCIUM LEVOFOLINATE [Suspect]
     Dosage: UNK
     Route: 041
  2. AVASTIN [Suspect]
     Dosage: 300 MG
     Route: 041
     Dates: start: 20090401, end: 20090601
  3. FLUOROURACIL [Suspect]
     Dosage: UNK
     Route: 042
  4. ELPLAT [Suspect]
     Indication: RECTAL CANCER RECURRENT
     Dosage: UNK
     Route: 041

REACTIONS (1)
  - NECROTISING FASCIITIS [None]
